FAERS Safety Report 17596047 (Version 2)
Quarter: 2020Q2

REPORT INFORMATION
  Report Type: Spontaneous
  Country: US (occurrence: US)
  Receive Date: 20200330
  Receipt Date: 20200407
  Transmission Date: 20200713
  Serious: No
  Sender: FDA-Public Use
  Company Number: US-JNJFOC-20200244161

PATIENT
  Sex: Female

DRUGS (1)
  1. MOTRIN INFANTS [Suspect]
     Active Substance: IBUPROFEN
     Indication: PYREXIA
     Dosage: PRODUCT START DATE: 2 IN HALF WEEKS AGO
     Route: 048

REACTIONS (3)
  - Inappropriate schedule of product administration [Unknown]
  - Poor quality product administered [Unknown]
  - Product contamination physical [Unknown]
